FAERS Safety Report 9412824 (Version 2)
Quarter: 2013Q3

REPORT INFORMATION
  Report Type: Report from Study
  Country: AR (occurrence: AR)
  Receive Date: 20130722
  Receipt Date: 20130830
  Transmission Date: 20140515
  Serious: Yes (Hospitalization, Other)
  Sender: FDA-Public Use
  Company Number: AR-ROCHE-1250450

PATIENT
  Sex: Female

DRUGS (1)
  1. RANIBIZUMAB [Suspect]
     Indication: RETINAL DETACHMENT
     Route: 050
     Dates: start: 2011

REACTIONS (4)
  - Fall [Recovering/Resolving]
  - Hip fracture [Recovering/Resolving]
  - Diabetes mellitus [Recovering/Resolving]
  - Myopia [Recovering/Resolving]
